FAERS Safety Report 9189720 (Version 1)
Quarter: 2013Q1

REPORT INFORMATION
  Report Type: Spontaneous
  Country: US (occurrence: US)
  Receive Date: 20130326
  Receipt Date: 20130326
  Transmission Date: 20140127
  Serious: No
  Sender: FDA-Public Use
  Company Number: US-BAYER-2013-037616

PATIENT
  Age: 71 Year
  Sex: Male
  Weight: 86.17 kg

DRUGS (5)
  1. ALEVE CAPLET/TABLET,MIDOL EXTENDED RELIEF CAPLET [Suspect]
     Dosage: 1 DF, QD
     Route: 048
  2. ALEVE CAPLET/TABLET,MIDOL EXTENDED RELIEF CAPLET [Suspect]
     Dosage: 1 DF, EVERY NIGHT
  3. CAPOTEN [Concomitant]
  4. CARDURA [Concomitant]
  5. NIACIN [Concomitant]

REACTIONS (3)
  - Accidental overdose [None]
  - Wrong drug administered [None]
  - Medication error [None]
